FAERS Safety Report 10473598 (Version 2)
Quarter: 2014Q3

REPORT INFORMATION
  Report Type: Spontaneous
  Country: AU (occurrence: AU)
  Receive Date: 20140924
  Receipt Date: 20140924
  Transmission Date: 20150326
  Serious: Yes (Other)
  Sender: FDA-Public Use
  Company Number: AU-CELGENE-008-21660-14084832

PATIENT
  Sex: Female
  Weight: 79 kg

DRUGS (1)
  1. ABRAXANE [Suspect]
     Active Substance: PACLITAXEL
     Indication: PANCREATIC CARCINOMA
     Dosage: 125 MILLIGRAM/SQ. METER
     Route: 041

REACTIONS (3)
  - Toxicity to various agents [Unknown]
  - Neutropenia [Unknown]
  - Anaemia [Unknown]
